FAERS Safety Report 4391323-3 (Version None)
Quarter: 2004Q2

REPORT INFORMATION
  Report Type: 
  Country: None (occurrence: None)
  Receive Date: 20040621
  Receipt Date: 20031107
  Transmission Date: 20050107
  Serious: Yes (Hospitalization, Other)
  Sender: FDA-Public Use
  Company Number: USA-2003-0010682

PATIENT
  Age: 51 Year
  Sex: Male

DRUGS (3)
  1. OXYCONTIN [Suspect]
     Indication: PAIN
     Dosage: 20 MG, Q12H, ORAL
     Route: 048
     Dates: start: 19970101, end: 20000101
  2. CITALOPRAM [Suspect]
     Indication: DEPRESSION
  3. CHOLESTEROL-AND TRIGLYCERIDE REDUCERS [Concomitant]

REACTIONS (5)
  - CONVULSION [None]
  - DRUG WITHDRAWAL HEADACHE [None]
  - DRUG WITHDRAWAL SYNDROME [None]
  - HEADACHE [None]
  - WEIGHT INCREASED [None]
